FAERS Safety Report 7805549 (Version 4)
Quarter: 2014Q1

REPORT INFORMATION
  Report Type: Spontaneous
  Country: US (occurrence: US)
  Receive Date: 20110209
  Receipt Date: 20140114
  Transmission Date: 20141002
  Serious: Yes (Other)
  Sender: FDA-Public Use
  Company Number: US-JNJFOC-20100805235

PATIENT
  Age: 19 Year
  Sex: Female

DRUGS (2)
  1. LEVAQUIN [Suspect]
     Indication: INFECTION
     Route: 048
     Dates: start: 20020101, end: 20041231
  2. LEVAQUIN [Suspect]
     Indication: PRODUCT USED FOR UNKNOWN INDICATION
     Route: 048

REACTIONS (5)
  - Ligament rupture [Unknown]
  - Tendon rupture [Unknown]
  - Tendonitis [Unknown]
  - Rotator cuff syndrome [Unknown]
  - Drug ineffective [Unknown]
